FAERS Safety Report 16368595 (Version 5)
Quarter: 2020Q2

REPORT INFORMATION
  Report Type: Report from Study
  Country: GB (occurrence: GB)
  Receive Date: 20190529
  Receipt Date: 20200415
  Transmission Date: 20200713
  Serious: Yes (Death, Hospitalization, Other)
  Sender: FDA-Public Use
  Company Number: GB-MYLANLABS-2019M1051159

PATIENT
  Sex: Female

DRUGS (58)
  1. DOCETAXEL. [Suspect]
     Active Substance: DOCETAXEL
     Dosage: 95 MILLIGRAM, Q3W
     Route: 042
     Dates: start: 20150826, end: 20150915
  2. SANDO K                            /00209301/ [Concomitant]
     Active Substance: POTASSIUM BICARBONATE\POTASSIUM CHLORIDE
     Dosage: 4 DOSAGE FORM, QD
     Route: 048
     Dates: start: 20150609, end: 20150611
  3. TRASTUZUMAB. [Suspect]
     Active Substance: TRASTUZUMAB
     Dosage: LOADING DOSE (MODIFIED DOSE)
     Route: 042
     Dates: start: 20150518, end: 20150518
  4. DENOSUMAB [Suspect]
     Active Substance: DENOSUMAB
     Dosage: 120 MILLIGRAM, MONTHLY
     Route: 058
     Dates: start: 20131007, end: 20160616
  5. PERTUZUMAB. [Suspect]
     Active Substance: PERTUZUMAB
     Dosage: MAINTENANCE DOSE
     Route: 042
     Dates: start: 20150611
  6. CYCLIZINE HYDROCHLORIDE [Concomitant]
     Active Substance: CYCLIZINE HYDROCHLORIDE
     Dosage: 50 MILLIGRAM,0.33 DAY
     Route: 048
     Dates: start: 20150521, end: 201602
  7. OXYCODONE [Concomitant]
     Active Substance: OXYCODONE
     Dosage: 40 MILLIGRAM, QD
     Route: 048
     Dates: start: 20150521
  8. OXYCODONE [Concomitant]
     Active Substance: OXYCODONE
     Dosage: 20 MILLIGRAM, 0.5 DAY
     Route: 048
     Dates: start: 20150521
  9. TRASTUZUMAB. [Suspect]
     Active Substance: TRASTUZUMAB
     Dosage: MAINTENANCE DOSE
     Route: 042
     Dates: start: 20150611
  10. DOCETAXEL. [Suspect]
     Active Substance: DOCETAXEL
     Dosage: 132 MILLIGRAM, Q3W
     Route: 042
     Dates: start: 20150519, end: 20150708
  11. DOCETAXEL. [Suspect]
     Active Substance: DOCETAXEL
     Dosage: ON 04/NOV/2015, SHE COMPLETED PLANNED CYCLES OF
     Route: 042
     Dates: start: 20150722, end: 20151104
  12. DOMPERIDONE [Concomitant]
     Active Substance: DOMPERIDONE
     Indication: MALAISE
     Dosage: 10 MILLIGRAM, 0.33 DAY
     Route: 048
     Dates: start: 20150727, end: 20150729
  13. DOMPERIDONE [Concomitant]
     Active Substance: DOMPERIDONE
     Dosage: 10 MILLIGRAM
     Route: 048
     Dates: start: 20160210
  14. DEXAMETHASONE. [Concomitant]
     Active Substance: DEXAMETHASONE
     Dosage: UNK
     Route: 048
     Dates: start: 20150729
  15. DEXAMETHASONE. [Concomitant]
     Active Substance: DEXAMETHASONE
     Dosage: 4 TABLETS 2 A DAY 0.5 DAY
     Route: 048
     Dates: start: 20150912, end: 20150914
  16. CHLORHEXIDINE GLUCONATE. [Concomitant]
     Active Substance: CHLORHEXIDINE GLUCONATE
     Dosage: 20 MILLILITER, QD
     Route: 048
     Dates: start: 20150708
  17. SODIUM CHLORIDE. [Concomitant]
     Active Substance: SODIUM CHLORIDE
     Dosage: UNK
     Route: 042
     Dates: start: 20150609, end: 20150609
  18. ONDANSETRON [Concomitant]
     Active Substance: ONDANSETRON
     Dosage: 8 MILLIGRAM
     Route: 048
     Dates: start: 20150826
  19. ONDANSETRON [Concomitant]
     Active Substance: ONDANSETRON
     Dosage: 8 MILLIGRAM
     Route: 048
     Dates: start: 20160210
  20. BENDROFLUMETHIAZIDE [Concomitant]
     Active Substance: BENDROFLUMETHIAZIDE
     Dosage: 2.5 MILLIGRAM
     Route: 048
  21. TRASTUZUMAB. [Suspect]
     Active Substance: TRASTUZUMAB
     Dosage: MAINTENANCE DOSE
     Route: 042
     Dates: start: 20150812
  22. CAPECITABINE. [Suspect]
     Active Substance: CAPECITABINE
     Dosage: 1500 MG AND 2000 MG
     Route: 048
     Dates: start: 20160510, end: 20160531
  23. CAPECITABINE. [Suspect]
     Active Substance: CAPECITABINE
     Dosage: 500 MILLIGRAM, Q3W
     Route: 048
     Dates: start: 20160510, end: 20160521
  24. PERTUZUMAB. [Suspect]
     Active Substance: PERTUZUMAB
     Dosage: MAINTENANCE DOSE
     Route: 042
     Dates: start: 20150722, end: 20150722
  25. CYCLIZINE HYDROCHLORIDE [Concomitant]
     Active Substance: CYCLIZINE HYDROCHLORIDE
     Dosage: 150 MILLIGRAM, QD
     Route: 048
     Dates: start: 20150521, end: 201602
  26. DOMPERIDONE [Concomitant]
     Active Substance: DOMPERIDONE
     Dosage: 10 MILLIGRAM, 0.33 DAY
     Route: 048
     Dates: start: 20150912, end: 20150914
  27. HEPARIN [Concomitant]
     Active Substance: HEPARIN SODIUM
     Dosage: 500 IU IN 5 ML
     Route: 042
     Dates: start: 20150527, end: 20150527
  28. LOPERAMIDE [Concomitant]
     Active Substance: LOPERAMIDE
     Dosage: 1 OR 2 CAPSULES, MAXIMUM 8 TIMES A DAY
     Route: 048
     Dates: start: 20150804
  29. DENOSUMAB [Suspect]
     Active Substance: DENOSUMAB
     Dosage: 120 MILLIGRAM, MONTHLY
     Route: 058
     Dates: start: 20150430
  30. DENOSUMAB [Suspect]
     Active Substance: DENOSUMAB
     Dosage: 120 MILLIGRAM, QD
     Route: 042
     Dates: start: 20150701, end: 20150701
  31. DENOSUMAB [Suspect]
     Active Substance: DENOSUMAB
     Dosage: 120 MILLIGRAM, MONTHLY
     Route: 042
     Dates: start: 20150821, end: 20150821
  32. PERTUZUMAB. [Suspect]
     Active Substance: PERTUZUMAB
     Dosage: LOADING DOSE
     Route: 042
     Dates: start: 20150518, end: 20150518
  33. CYCLIZINE HYDROCHLORIDE [Concomitant]
     Active Substance: CYCLIZINE HYDROCHLORIDE
     Dosage: 150 MILLIGRAM, QD
     Route: 048
     Dates: start: 20160627
  34. OXYCODONE [Concomitant]
     Active Substance: OXYCODONE
     Dosage: 5 MILLIGRAM. 0.5 DAY
     Route: 048
     Dates: start: 20150521
  35. LANSOPRAZOLE. [Concomitant]
     Active Substance: LANSOPRAZOLE
     Dosage: 30 MILLIGRAM, QD
     Route: 048
     Dates: start: 20150521
  36. LOPERAMIDE [Concomitant]
     Active Substance: LOPERAMIDE
     Indication: PROPHYLAXIS
     Dosage: 2 MILLIGRAM
     Route: 048
     Dates: start: 20150821
  37. TRASTUZUMAB. [Suspect]
     Active Substance: TRASTUZUMAB
     Dosage: LOADING DOSE
     Route: 042
     Dates: start: 20150722, end: 20150722
  38. DENOSUMAB [Suspect]
     Active Substance: DENOSUMAB
     Dosage: 120 MILLIGRAM, QD
     Route: 042
     Dates: start: 20150912, end: 20150912
  39. PERTUZUMAB. [Suspect]
     Active Substance: PERTUZUMAB
     Dosage: MAINTENANCE DOSE
     Route: 042
     Dates: start: 20150812
  40. LETROZOLE. [Suspect]
     Active Substance: LETROZOLE
     Dosage: 2.5 MILLIGRAM, QD
     Route: 048
     Dates: start: 20151124
  41. CYCLIZINE HYDROCHLORIDE [Concomitant]
     Active Substance: CYCLIZINE HYDROCHLORIDE
     Dosage: 150 MILLIGRAM,0.33 DAY
     Route: 048
     Dates: start: 20160627
  42. DEXAMETHASONE. [Concomitant]
     Active Substance: DEXAMETHASONE
     Dosage: 4 TABLETS 2 A DAY, 0.5 DAY
     Route: 048
     Dates: start: 20150821, end: 20150823
  43. DEXAMETHASONE. [Concomitant]
     Active Substance: DEXAMETHASONE
     Dosage: 4 TABLETS 2 A DAY. 0.5 DAY
     Route: 048
     Dates: start: 20150727, end: 20150729
  44. DEXAMETHASONE. [Concomitant]
     Active Substance: DEXAMETHASONE
     Dosage: 3 DAYS STARTING A DAY BEFORE
     Route: 048
     Dates: start: 20150806
  45. TRASTUZUMAB. [Suspect]
     Active Substance: TRASTUZUMAB
     Dosage: 1 CYCLE
     Route: 058
     Dates: start: 20150520, end: 20150520
  46. CYCLIZINE HYDROCHLORIDE [Concomitant]
     Active Substance: CYCLIZINE HYDROCHLORIDE
     Dosage: 150 MILLIGRAM 0.33 DAY
     Route: 048
     Dates: start: 20150521, end: 201602
  47. CYCLIZINE HYDROCHLORIDE [Concomitant]
     Active Substance: CYCLIZINE HYDROCHLORIDE
     Dosage: 50 MILLIGRAM,0.33 DAY
     Route: 048
     Dates: start: 20160627
  48. DEXAMETHASONE. [Concomitant]
     Active Substance: DEXAMETHASONE
     Indication: PROPHYLAXIS
     Dosage: 4 TABLETS 2 A DAY
     Route: 048
     Dates: start: 20150610, end: 20150612
  49. DEXAMETHASONE. [Concomitant]
     Active Substance: DEXAMETHASONE
     Dosage: 4 TABLETS 2 A DAY, 0.5 DAY
     Route: 048
     Dates: start: 20160628, end: 20160718
  50. DEXAMETHASONE. [Concomitant]
     Active Substance: DEXAMETHASONE
     Dosage: 4 TABLETS 2 A DAY
     Route: 048
     Dates: start: 20150613, end: 20150704
  51. CHLORHEXIDINE GLUCONATE. [Concomitant]
     Active Substance: CHLORHEXIDINE GLUCONATE
     Dosage: 5 MILLILITER 0.25 DAY
     Route: 048
     Dates: start: 20150708
  52. OXYCODONE [Concomitant]
     Active Substance: OXYCODONE
     Dosage: 10 MILLIGRAM, QD
     Route: 048
     Dates: start: 20150521
  53. ONDANSETRON [Concomitant]
     Active Substance: ONDANSETRON
     Dosage: 8 MILLIGRAM
     Route: 048
     Dates: start: 20150729
  54. NAPROXEN. [Concomitant]
     Active Substance: NAPROXEN
     Dosage: UNK UNK, PRN
     Route: 048
  55. DOCETAXEL. [Suspect]
     Active Substance: DOCETAXEL
     Dosage: 116 MILLIGRAM, Q3W
     Route: 042
     Dates: start: 20150708, end: 20150729
  56. DOMPERIDONE [Concomitant]
     Active Substance: DOMPERIDONE
     Dosage: 10 MILLIGRAM, 0.33 DAY
     Route: 048
     Dates: start: 20150609, end: 20150611
  57. 3M CAVILON ANTIFUNGAL [Concomitant]
     Active Substance: MICONAZOLE NITRATE
     Dosage: 0.5 DAYSCAVILON DURABLE BARRIER CREAM APPLIED DURING CHANGING PICC LINE DRESSINGS
     Route: 061
     Dates: start: 20151028
  58. SANDO K                            /00209301/ [Concomitant]
     Active Substance: POTASSIUM BICARBONATE\POTASSIUM CHLORIDE
     Dosage: 2 DOSAGE FORM, 0.5 DAY
     Route: 048
     Dates: start: 20150609, end: 20150611

REACTIONS (47)
  - Metastases to meninges [Fatal]
  - Hypoglycaemia [Recovered/Resolved]
  - Ejection fraction decreased [Not Recovered/Not Resolved]
  - Nail dystrophy [Recovered/Resolved]
  - Dysgeusia [Recovered/Resolved]
  - Catheter site inflammation [Recovered/Resolved]
  - Hypocalcaemia [Recovered/Resolved]
  - Claustrophobia [Recovered/Resolved]
  - Palpitations [Recovered/Resolved]
  - Onychomadesis [Recovered/Resolved]
  - Lethargy [Recovered/Resolved]
  - Visual impairment [Recovered/Resolved]
  - Vomiting [Recovered/Resolved]
  - Pericardial effusion [Recovered/Resolved]
  - Rash erythematous [Recovered/Resolved]
  - Rash [Recovered/Resolved]
  - Dysphagia [Not Recovered/Not Resolved]
  - Dyspepsia [Recovered/Resolved]
  - Nausea [Recovering/Resolving]
  - Decreased appetite [Recovered/Resolved]
  - Chest discomfort [Not Recovered/Not Resolved]
  - Bone marrow failure [Recovered/Resolved]
  - Erythema [Recovering/Resolving]
  - Skin exfoliation [Not Recovered/Not Resolved]
  - Neuropathy peripheral [Recovered/Resolved]
  - Malaise [Recovering/Resolving]
  - Fatigue [Recovering/Resolving]
  - Urinary tract infection [Unknown]
  - Hypokalaemia [Recovered/Resolved]
  - Pruritus [Recovered/Resolved]
  - Vision blurred [Recovered/Resolved]
  - Spinal fracture [Recovered/Resolved]
  - Eye haemorrhage [Recovered/Resolved]
  - Cushingoid [Recovered/Resolved]
  - Breast tenderness [Unknown]
  - Impaired gastric emptying [Recovered/Resolved]
  - Dry eye [Recovered/Resolved]
  - Back pain [Not Recovered/Not Resolved]
  - Oedema peripheral [Recovered/Resolved]
  - Neutropenic sepsis [Recovered/Resolved]
  - Erythema [Recovered/Resolved]
  - Eye pruritus [Recovered/Resolved]
  - Weight increased [Recovering/Resolving]
  - Anxiety [Recovered/Resolved]
  - Myalgia [Recovered/Resolved]
  - Bronchitis [Recovered/Resolved]
  - Cellulitis [Recovered/Resolved]

NARRATIVE: CASE EVENT DATE: 2015
